FAERS Safety Report 6274360-3 (Version None)
Quarter: 2009Q3

REPORT INFORMATION
  Report Type: 
  Country: None (occurrence: None)
  Receive Date: 20090716
  Receipt Date: 20090709
  Transmission Date: 20100115
  Serious: Yes (Hospitalization)
  Sender: FDA-Public Use
  Company Number: FRP09000772

PATIENT
  Age: 58 Year
  Sex: Female
  Weight: 60 kg

DRUGS (7)
  1. ACTONEL [Suspect]
     Dosage: ORAL
     Route: 048
     Dates: start: 20070101
  2. NEXIUM [Suspect]
     Dosage: ORAL
     Route: 048
  3. METHOTREXATE (METHOTREXATE) [Suspect]
     Dosage: 10 MG, 1 /WEEK, ORAL
     Route: 048
     Dates: start: 19870101
  4. LYRICA [Suspect]
     Indication: FACIAL PAIN
     Dosage: 200 MG, 1 /DAY
     Dates: start: 20070101
  5. REMICADE [Suspect]
     Dosage: 1 DF, EVERY 8WK
     Dates: start: 20010101, end: 20081223
  6. POTASSIUM CHLORIDE [Suspect]
  7. FORSTEO /00978701/ (TERIPARATIDE) [Suspect]
     Indication: OSTEOPOROSIS
     Dosage: SUBCUTANEOUS
     Route: 058
     Dates: start: 20080201, end: 20081201

REACTIONS (4)
  - GAIT DISTURBANCE [None]
  - LOCALISED INFECTION [None]
  - PARAESTHESIA [None]
  - PERIPHERAL SENSORIMOTOR NEUROPATHY [None]
